FAERS Safety Report 15010270 (Version 1)
Quarter: 2018Q2

REPORT INFORMATION
  Report Type: Spontaneous
  Country: US (occurrence: US)
  Receive Date: 20180614
  Receipt Date: 20180614
  Transmission Date: 20180711
  Serious: No
  Sender: FDA-Public Use
  Company Number: US-BAYER-2018-103920

PATIENT
  Sex: Male

DRUGS (1)
  1. CLARITIN [Suspect]
     Active Substance: LORATADINE
     Dosage: 0.5 DF, UNK

REACTIONS (3)
  - Drug intolerance [None]
  - Intentional product misuse [Unknown]
  - Wrong technique in product usage process [Unknown]
